FAERS Safety Report 5871723-2 (Version None)
Quarter: 2008Q3

REPORT INFORMATION
  Report Type: 
  Country: None (occurrence: None)
  Receive Date: 20080905
  Receipt Date: 20080829
  Transmission Date: 20090109
  Serious: Yes (Hospitalization, Disabling, Other)
  Sender: FDA-Public Use
  Company Number: HQWYE970517AUG05

PATIENT
  Sex: Female
  Weight: 80.36 kg

DRUGS (6)
  1. PREMPRO [Suspect]
  2. VAGIFEM [Suspect]
  3. PROVERA [Suspect]
  4. MEDROXYPROGESTERONE ACETATE [Suspect]
  5. PREMARIN [Suspect]
  6. CYCRIN [Suspect]

REACTIONS (1)
  - BREAST CANCER METASTATIC [None]
